FAERS Safety Report 9312208 (Version 2)
Quarter: 2013Q4

REPORT INFORMATION
  Report Type: Spontaneous
  Country: US (occurrence: US)
  Receive Date: 20130528
  Receipt Date: 20131126
  Transmission Date: 20140711
  Serious: Yes (Other)
  Sender: FDA-Public Use
  Company Number: US-BAYER-2013-065720

PATIENT
  Age: 11 Year
  Sex: Female

DRUGS (12)
  1. YAZ [Suspect]
     Dosage: UNK
  2. YASMIN [Suspect]
     Dosage: UNK
  3. LORTAB [Concomitant]
     Dosage: UNK
  4. QVAR [Concomitant]
     Dosage: UNK
  5. XOPENEX [Concomitant]
     Dosage: UNK
  6. ZANTAC [Concomitant]
     Dosage: 300 MG, UNK
  7. ZYRTEC [Concomitant]
     Dosage: 5 MG, UNK
  8. SINGULAIR [Concomitant]
     Dosage: 10 MG, UNK
  9. TAGAMET [Concomitant]
     Dosage: 300 MG, UNK
  10. PREVACID [Concomitant]
     Dosage: UNK
  11. HYDROXYZINE [Concomitant]
     Dosage: UNK
  12. ALBUTEROL [Concomitant]
     Dosage: UNK

REACTIONS (5)
  - Gallbladder injury [None]
  - Biliary dyskinesia [None]
  - Injury [None]
  - Pain [None]
  - Pain [None]
